FAERS Safety Report 25853218 (Version 1)
Quarter: 2025Q3

REPORT INFORMATION
  Report Type: Spontaneous
  Country: US (occurrence: US)
  Receive Date: 20250926
  Receipt Date: 20250926
  Transmission Date: 20251020
  Serious: No
  Sender: RIGEL PHARMACEUTICALS
  Company Number: US-RIGEL Pharmaceuticals, INC-20250800137

PATIENT
  Age: 73 Year
  Sex: Female

DRUGS (3)
  1. REZLIDHIA [Suspect]
     Active Substance: OLUTASIDENIB
     Indication: Acute myeloid leukaemia
     Dosage: 150 MG BID
     Route: 048
     Dates: start: 20250804
  2. LOSARTAN [Concomitant]
     Active Substance: LOSARTAN
     Indication: Product used for unknown indication
     Dates: end: 202508
  3. SPIRONOLACTONE [Concomitant]
     Active Substance: SPIRONOLACTONE
     Indication: Product used for unknown indication
     Dates: end: 202508

REACTIONS (4)
  - Full blood count abnormal [Unknown]
  - Platelet count decreased [Unknown]
  - Transfusion [Unknown]
  - Nausea [Unknown]

NARRATIVE: CASE EVENT DATE: 20250801
